FAERS Safety Report 11301099 (Version 2)
Quarter: 2016Q2

REPORT INFORMATION
  Report Type: Spontaneous
  Country: US (occurrence: US)
  Receive Date: 20150722
  Receipt Date: 20160420
  Transmission Date: 20160815
  Serious: No
  Sender: FDA-Public Use
  Company Number: US-ELI_LILLY_AND_COMPANY-US201406004690

PATIENT
  Age: 67 Year
  Sex: Female

DRUGS (4)
  1. HUMATROPE [Suspect]
     Active Substance: SOMATROPIN
     Dosage: 0.7 MG, QD
     Route: 058
     Dates: end: 201506
  2. PREDNISONE. [Concomitant]
     Active Substance: PREDNISONE
     Dosage: 5 MG, UNK
  3. HUMATROPE [Suspect]
     Active Substance: SOMATROPIN
     Indication: GROWTH HORMONE DEFICIENCY
     Dosage: 0.6 MG, QD
     Route: 065
     Dates: start: 2000, end: 201312
  4. HUMATROPE [Suspect]
     Active Substance: SOMATROPIN
     Dosage: 0.6 MG, UNK
     Route: 058
     Dates: end: 201506

REACTIONS (6)
  - Incorrect dose administered [Unknown]
  - Asthenia [Unknown]
  - Weight decreased [Unknown]
  - Heart rate decreased [Unknown]
  - Malaise [Unknown]
  - Arthropathy [Unknown]

NARRATIVE: CASE EVENT DATE: 201312
